FAERS Safety Report 20423491 (Version 3)
Quarter: 2022Q1

REPORT INFORMATION
  Report Type: Report from Study
  Country: CN (occurrence: CN)
  Receive Date: 20220203
  Receipt Date: 20220314
  Transmission Date: 20220423
  Serious: Yes (Hospitalization)
  Sender: FDA-Public Use
  Company Number: CN-FOSUNKITE-FOSUNKITE-20220002

PATIENT

DRUGS (7)
  1. AXICABTAGENE CILOLEUCEL [Suspect]
     Active Substance: AXICABTAGENE CILOLEUCEL
     Indication: Diffuse large B-cell lymphoma
     Dosage: 68 ML
     Route: 041
     Dates: start: 20211221, end: 20211221
  2. CYCLOPHOSPHAMIDE [Concomitant]
     Active Substance: CYCLOPHOSPHAMIDE
     Indication: Lymphodepletion
     Dosage: 0.9 G
     Route: 041
     Dates: start: 20211216, end: 20211219
  3. FLUDARABINE [Concomitant]
     Active Substance: FLUDARABINE PHOSPHATE
     Indication: Lymphodepletion
     Dosage: 50 MG
     Route: 041
     Dates: start: 20211216, end: 20211219
  4. METFORMIN HYDROCHLORIDE [Concomitant]
     Active Substance: METFORMIN HYDROCHLORIDE
     Indication: Diabetes mellitus
     Dosage: 0.5 G, BID
     Route: 048
     Dates: start: 20201225
  5. METFORMIN HYDROCHLORIDE [Concomitant]
     Active Substance: METFORMIN HYDROCHLORIDE
     Indication: Type 2 diabetes mellitus
  6. GLIPIZIDE [Concomitant]
     Active Substance: GLIPIZIDE
     Indication: Diabetes mellitus
     Dosage: 5 MG, QD
     Route: 048
     Dates: start: 202101
  7. GLIPIZIDE [Concomitant]
     Active Substance: GLIPIZIDE
     Indication: Type 2 diabetes mellitus

REACTIONS (1)
  - Haematotoxicity [Recovered/Resolved]

NARRATIVE: CASE EVENT DATE: 20220114
